FAERS Safety Report 5155044-1 (Version None)
Quarter: 2006Q4

REPORT INFORMATION
  Report Type: 
  Country: None (occurrence: None)
  Receive Date: 20061121
  Receipt Date: 20061030
  Transmission Date: 20070319
  Serious: No
  Sender: FDA-Public Use
  Company Number: IT-ELI_LILLY_AND_COMPANY-IT200611000522

PATIENT
  Age: 36 Year
  Sex: Male
  Weight: 70 kg

DRUGS (2)
  1. HEPARIN [Concomitant]
     Dosage: 0.5 ML, DAILY (1/D)
  2. XIGRIS [Suspect]
     Indication: SEPTIC SHOCK
     Dosage: 24 MCG/KG/HOUR
     Route: 042
     Dates: start: 20061028

REACTIONS (1)
  - THROMBOCYTOPENIA [None]
